FAERS Safety Report 7408279-9 (Version None)
Quarter: 2011Q2

REPORT INFORMATION
  Report Type: 
  Country: None (occurrence: None)
  Receive Date: 20110412
  Receipt Date: 20110314
  Transmission Date: 20111010
  Serious: Yes (Hospitalization, Other)
  Sender: FDA-Public Use
  Company Number: US-BAYER-2011-022267

PATIENT
  Sex: Female
  Weight: 95.238 kg

DRUGS (1)
  1. YASMIN [Suspect]
     Indication: ORAL CONTRACEPTION
     Dosage: UNK
     Dates: start: 20050725, end: 20070621

REACTIONS (7)
  - CHOLELITHIASIS [None]
  - ABDOMINAL DISCOMFORT [None]
  - PAIN [None]
  - INJURY [None]
  - ABDOMINAL PAIN [None]
  - EMOTIONAL DISTRESS [None]
  - DIARRHOEA [None]
